FAERS Safety Report 9877959 (Version 2)
Quarter: 2014Q1

REPORT INFORMATION
  Report Type: Report from Study
  Country: JP (occurrence: JP)
  Receive Date: 20140206
  Receipt Date: 20140303
  Transmission Date: 20141002
  Serious: Yes (Hospitalization)
  Sender: FDA-Public Use
  Company Number: JP-JNJFOC-20140202822

PATIENT
  Age: 83 Year
  Sex: Male
  Weight: 47 kg

DRUGS (13)
  1. XARELTO [Suspect]
     Indication: ATRIAL FIBRILLATION
     Route: 048
     Dates: start: 20130725
  2. XARELTO [Suspect]
     Indication: THROMBOSIS PROPHYLAXIS
     Route: 048
     Dates: start: 20130725
  3. XARELTO [Suspect]
     Indication: CEREBROVASCULAR ACCIDENT PROPHYLAXIS
     Route: 048
     Dates: start: 20130725
  4. MAGNESIUM OXIDE [Concomitant]
     Route: 048
  5. TRAZENTA [Concomitant]
     Route: 048
     Dates: start: 20130727
  6. MIGLITOL [Concomitant]
     Route: 048
     Dates: start: 20130727
  7. EPADEL [Concomitant]
     Route: 048
  8. STARSIS [Concomitant]
     Route: 048
     Dates: end: 20130726
  9. MILTAX [Concomitant]
     Route: 061
  10. DIOVAN [Concomitant]
     Route: 048
     Dates: end: 20130726
  11. DIOVAN [Concomitant]
     Route: 048
     Dates: start: 20130727
  12. ACTOS [Concomitant]
     Route: 048
  13. LIVALO [Concomitant]
     Route: 048

REACTIONS (3)
  - Rib fracture [Recovered/Resolved]
  - Pneumonia [Recovered/Resolved]
  - Haemothorax [Recovered/Resolved]
